FAERS Safety Report 8514864-3 (Version None)
Quarter: 2012Q3

REPORT INFORMATION
  Report Type: 
  Country: None (occurrence: None)
  Receive Date: 20120711
  Receipt Date: 20120711
  Transmission Date: 20120928
  Serious: No
  Sender: FDA-Public Use
  Company Number: None

PATIENT
  Age: 85 Year
  Sex: Male
  Weight: 126.2 kg

DRUGS (1)
  1. WARFARIN SODIUM [Suspect]
     Dosage: MG EVERY DAY PO
     Route: 048

REACTIONS (1)
  - GASTRIC HAEMORRHAGE [None]
